FAERS Safety Report 6296888-2 (Version None)
Quarter: 2009Q3

REPORT INFORMATION
  Report Type: 
  Country: None (occurrence: None)
  Receive Date: 20090804
  Receipt Date: 20090728
  Transmission Date: 20100115
  Serious: Yes (Hospitalization)
  Sender: FDA-Public Use
  Company Number: PHHO2008JP05074

PATIENT
  Age: 74 Year
  Sex: Male

DRUGS (15)
  1. RAD 666 / RAD 001A [Suspect]
     Indication: RENAL CANCER METASTATIC
     Dosage: 10 MG / DAY
     Route: 048
     Dates: start: 20080207
  2. RAD 666 / RAD 001A [Suspect]
     Dosage: 5 MG / DAY
     Route: 048
     Dates: start: 20080402, end: 20080415
  3. RAD 666 / RAD 001A [Suspect]
     Dosage: NO TREATMENT
     Dates: start: 20080416, end: 20080504
  4. RAD 666 / RAD 001A [Suspect]
     Dosage: 5 MG, QD
     Route: 048
     Dates: start: 20080505
  5. PLACEBO COMP-PLA+ [Suspect]
     Indication: RENAL CANCER METASTATIC
     Dosage: UNK
     Route: 048
     Dates: start: 20070925, end: 20080121
  6. FERO-GRADUMET [Concomitant]
  7. HACHIAZULE [Concomitant]
  8. AFTACH [Concomitant]
  9. HUSTAGIN [Concomitant]
  10. MEDICON [Concomitant]
  11. CAFFEINE AND SODIUM BENZOATE [Concomitant]
  12. CODEINE PHOSPHATE [Concomitant]
  13. LOXOPROFEN SODIUM [Concomitant]
  14. FAMOTIDINE [Concomitant]
  15. CYANOCOBALAMIN [Concomitant]

REACTIONS (7)
  - CONSTIPATION [None]
  - DYSPNOEA EXERTIONAL [None]
  - FATIGUE [None]
  - INTERSTITIAL LUNG DISEASE [None]
  - OXYGEN SATURATION ABNORMAL [None]
  - PYREXIA [None]
  - STOMATITIS [None]
